FAERS Safety Report 13695177 (Version 1)
Quarter: 2017Q2

REPORT INFORMATION
  Report Type: Spontaneous
  Country: CA (occurrence: CA)
  Receive Date: 20170627
  Receipt Date: 20170627
  Transmission Date: 20170830
  Serious: Yes (Other)
  Sender: FDA-Public Use
  Company Number: CA-GEHC-2017CSU001810

PATIENT

DRUGS (1)
  1. OMNIPAQUE [Suspect]
     Active Substance: IOHEXOL
     Indication: FUNCTIONAL GASTROINTESTINAL DISORDER
     Dosage: 100 ML, SINGLE
     Route: 042
     Dates: start: 20170223, end: 20170223

REACTIONS (4)
  - Dysphagia [Recovered/Resolved]
  - Hypoaesthesia oral [Unknown]
  - Throat tightness [Recovered/Resolved]
  - Urticaria [Unknown]

NARRATIVE: CASE EVENT DATE: 20170223
